FAERS Safety Report 4597016-1 (Version None)
Quarter: 2005Q1

REPORT INFORMATION
  Report Type: 
  Country: None (occurrence: None)
  Receive Date: 20050301
  Receipt Date: 20050121
  Transmission Date: 20050727
  Serious: Yes (Death)
  Sender: FDA-Public Use
  Company Number: 2005S1000268

PATIENT
  Age: 66 Year
  Sex: Male
  Weight: 116.1208 kg

DRUGS (20)
  1. CLOZAPINE ABLETS 100 MG MYLAN [Suspect]
     Indication: SCHIZOPHRENIA
     Dosage: 200MG QAM AND 300MG QHS, ORAL
     Route: 048
     Dates: end: 20050119
  2. HEPARIN [Concomitant]
  3. LOXAPINE [Concomitant]
  4. METRONIDAZOLE [Concomitant]
  5. DIVALOPROEX [Concomitant]
  6. VANCOMYCIN [Concomitant]
  7. ACETAMINOPHEN [Concomitant]
  8. FLUTICASONE PROPIONATE [Concomitant]
  9. CALCIUM GLUCONATE [Concomitant]
  10. BUSPIRONE [Concomitant]
  11. CLONAZEPAM [Concomitant]
  12. MONTELUKAST [Concomitant]
  13. PIPERACILLIN SODIUM/TAZOBACTAM SODIUM [Concomitant]
  14. FLUTICASONE/SALMETEROL INHALER [Concomitant]
  15. LANSOPRAZOLE [Concomitant]
  16. CALCIUM CITRATE [Concomitant]
  17. MULTI-VITAMINS [Concomitant]
  18. ALBUTEROL [Concomitant]
  19. IPRATROPIUM BROMIDE [Concomitant]
  20. LEVOFLOXACIN [Concomitant]

REACTIONS (11)
  - ABDOMINAL DISTENSION [None]
  - BACTERAEMIA [None]
  - CARDIAC ARREST [None]
  - CONFUSIONAL STATE [None]
  - HYPONATRAEMIA [None]
  - INAPPROPRIATE ANTIDIURETIC HORMONE SECRETION [None]
  - INFECTION [None]
  - LUNG DISORDER [None]
  - PATHOGEN RESISTANCE [None]
  - PNEUMONIA [None]
  - RESPIRATORY ARREST [None]
